FAERS Safety Report 21411844 (Version 1)
Quarter: 2022Q4

REPORT INFORMATION
  Report Type: Spontaneous
  Country: GB (occurrence: GB)
  Receive Date: 20221005
  Receipt Date: 20221005
  Transmission Date: 20230113
  Serious: Yes (Hospitalization)
  Sender: FDA-Public Use
  Company Number: GB-MHRA-MED-202209230859172760-QNDTR

PATIENT
  Age: 88 Year
  Sex: Female

DRUGS (6)
  1. DIGOXIN [Suspect]
     Active Substance: DIGOXIN
     Indication: Product used for unknown indication
     Dosage: 62.5 MICROGRAM DAILY; EACH MORNING; UNIT DOSE : 62.5 MICROGRAM, FREQUENCY ; 1 , FREQUENCY TIME : 1 D
     Route: 065
  2. ENTRESTO [Suspect]
     Active Substance: SACUBITRIL\VALSARTAN
     Indication: Cardiac failure
     Dosage: 2 DOSAGE FORMS DAILY; 24MG/26MG,MORNING AND EVENING; UNIT DOSE : 1 DOSAGE FORMS, FREQUENCY ; 2 , FRE
     Route: 065
     Dates: start: 20220726
  3. SPIRONOLACTONE [Suspect]
     Active Substance: SPIRONOLACTONE
     Indication: Cardiac failure
     Dosage: 25 MILLIGRAM DAILY; EACH MORNING; THERAPY END DATE : NOT ASKED, UNIT DOSE : 25 MG, FREQUENCY ; 1 , F
     Route: 065
     Dates: start: 20220808
  4. APIXABAN [Concomitant]
     Active Substance: APIXABAN
     Indication: Atrial fibrillation
  5. BISOPROLOL [Concomitant]
     Active Substance: BISOPROLOL
     Indication: Atrial fibrillation
  6. CARBIMAZOLE [Concomitant]
     Active Substance: CARBIMAZOLE
     Indication: Hyperthyroidism

REACTIONS (3)
  - Acute kidney injury [Recovered/Resolved]
  - Hyperkalaemia [Recovered/Resolved]
  - Toxicity to various agents [Recovered/Resolved]

NARRATIVE: CASE EVENT DATE: 20220913
